FAERS Safety Report 16904262 (Version 1)
Quarter: 2019Q4

REPORT INFORMATION
  Report Type: Spontaneous
  Country: US (occurrence: US)
  Receive Date: 20191009
  Receipt Date: 20191009
  Transmission Date: 20200122
  Serious: Yes (Hospitalization)
  Sender: FDA-Public Use
  Company Number: None

PATIENT
  Age: 58 Year
  Sex: Male
  Weight: 94.5 kg

DRUGS (1)
  1. OZEMPIC [Suspect]
     Active Substance: SEMAGLUTIDE
     Indication: TYPE 2 DIABETES MELLITUS
     Dosage: ?          QUANTITY:.25 INJECTION(S);OTHER FREQUENCY:1 INJECTION/WEEK;?
     Route: 058
     Dates: start: 20190909, end: 20190916

REACTIONS (2)
  - Diabetic ketoacidosis [None]
  - Pancreatitis [None]

NARRATIVE: CASE EVENT DATE: 20190916
